FAERS Safety Report 15361048 (Version 7)
Quarter: 2020Q1

REPORT INFORMATION
  Report Type: Spontaneous
  Country: US (occurrence: US)
  Receive Date: 20180907
  Receipt Date: 20200106
  Transmission Date: 20200409
  Serious: No
  Sender: FDA-Public Use
  Company Number: US-SA-2018SA248623

PATIENT
  Age: 34 Year
  Sex: Female

DRUGS (3)
  1. CBD OIL [Concomitant]
     Active Substance: CANNABIDIOL\HERBALS
  2. DUPIXENT [Suspect]
     Active Substance: DUPILUMAB
     Indication: ECZEMA
     Dosage: 300 MG, QOW
     Route: 058
     Dates: start: 20180216
  3. DUPIXENT [Suspect]
     Active Substance: DUPILUMAB
     Indication: DERMATITIS ATOPIC

REACTIONS (6)
  - Nail discolouration [Unknown]
  - Dandruff [Unknown]
  - Burns first degree [Recovering/Resolving]
  - Menorrhagia [Unknown]
  - Fatigue [Unknown]
  - Onychomycosis [Unknown]

NARRATIVE: CASE EVENT DATE: 2018
